FAERS Safety Report 6701808-X (Version None)
Quarter: 2010Q2

REPORT INFORMATION
  Report Type: 
  Country: None (occurrence: None)
  Receive Date: 20100429
  Receipt Date: 20100409
  Transmission Date: 20101027
  Serious: Yes (Hospitalization)
  Sender: FDA-Public Use
  Company Number: US-SANOFI-AVENTIS-A03200904403

PATIENT
  Age: 50 Year
  Sex: Male

DRUGS (11)
  1. DRONEDARONE HCL [Suspect]
     Dosage: UNIT DOSE: 400 MG
     Route: 048
     Dates: start: 20090909, end: 20090901
  2. AMIODARONE [Concomitant]
     Dosage: 1-2 MONTHS PRIOR TO DRONEDARONE
  3. CARVEDILOL [Concomitant]
     Route: 048
  4. DIGOXIN [Concomitant]
     Dosage: 0.125MG MON. WED. FRI. SAT
     Route: 048
  5. DIGOXIN [Concomitant]
     Route: 048
  6. FUROSEMIDE [Concomitant]
  7. WARFARIN SODIUM [Concomitant]
  8. POTASSIUM CHLORIDE [Concomitant]
  9. SPIRONOLACTONE [Concomitant]
  10. LOVASTATIN [Concomitant]
  11. SYNTHROID [Concomitant]

REACTIONS (4)
  - BLOOD CREATININE INCREASED [None]
  - CARDIAC FAILURE [None]
  - DYSPNOEA [None]
  - INTERNATIONAL NORMALISED RATIO INCREASED [None]
